FAERS Safety Report 4791317-X (Version None)
Quarter: 2005Q4

REPORT INFORMATION
  Report Type: 
  Country: None (occurrence: None)
  Receive Date: 20051007
  Receipt Date: 20050927
  Transmission Date: 20060501
  Serious: Yes (Hospitalization)
  Sender: FDA-Public Use
  Company Number: DE-JNJFOC-20040806472

PATIENT
  Age: 51 Year
  Sex: Female

DRUGS (7)
  1. REMICADE [Suspect]
     Route: 042
  2. REMICADE [Suspect]
     Indication: RHEUMATOID ARTHRITIS
     Route: 042
  3. PREDNISOLONE [Suspect]
     Indication: RHEUMATOID ARTHRITIS
  4. ENALAPRIL [Concomitant]
     Indication: HYPERTENSION
  5. METROPOLOL [Concomitant]
     Indication: HYPERTENSION
  6. AMITRIPTYLIN [Concomitant]
     Indication: POLYNEUROPATHY
  7. GABAPENTIN [Concomitant]
     Indication: POLYNEUROPATHY

REACTIONS (5)
  - DYSPNOEA [None]
  - ERYSIPELAS [None]
  - FLUSHING [None]
  - INFUSION RELATED REACTION [None]
  - PARAESTHESIA ORAL [None]
